FAERS Safety Report 5545263-4 (Version None)
Quarter: 2007Q4

REPORT INFORMATION
  Report Type: 
  Country: None (occurrence: None)
  Receive Date: 20071211
  Receipt Date: 20071129
  Transmission Date: 20080405
  Serious: Yes (Other)
  Sender: FDA-Public Use
  Company Number: PHBS2007JP18833

PATIENT
  Age: 64 Year
  Sex: Female

DRUGS (5)
  1. METOPIRONE [Suspect]
     Indication: PITUITARY-DEPENDENT CUSHING'S SYNDROME
     Dosage: 750MG/D
     Route: 048
     Dates: start: 20071102, end: 20071112
  2. DEPAKENE [Suspect]
     Dosage: 600MG/D
     Route: 048
     Dates: start: 19970901, end: 20071117
  3. SERENACE [Concomitant]
     Dosage: 6MG/D
     Route: 048
     Dates: start: 20071029
  4. AKINETON [Concomitant]
     Dosage: 3MG/D
     Route: 048
     Dates: start: 20070112
  5. TRICHLORMETHIAZIDE [Concomitant]
     Indication: NEPHROGENIC DIABETES INSIPIDUS
     Dosage: 2MG/D
     Route: 048
     Dates: start: 20071101

REACTIONS (3)
  - BLOOD CORTICOTROPHIN DECREASED [None]
  - BLOOD CORTISOL DECREASED [None]
  - DRUG INTERACTION POTENTIATION [None]
